FAERS Safety Report 11696656 (Version 2)
Quarter: 2015Q4

REPORT INFORMATION
  Report Type: Spontaneous
  Country: US (occurrence: US)
  Receive Date: 20151104
  Receipt Date: 20151124
  Transmission Date: 20160304
  Serious: Yes (Other)
  Sender: FDA-Public Use
  Company Number: US-GLAXOSMITHKLINE-US2015GSK157172

PATIENT
  Age: 70 Year
  Sex: Female

DRUGS (3)
  1. ADVAIR HFA [Suspect]
     Active Substance: FLUTICASONE PROPIONATE\SALMETEROL XINAFOATE
     Dosage: UNK, QD
  2. SPIRIVA [Suspect]
     Active Substance: TIOTROPIUM BROMIDE MONOHYDRATE
     Indication: PRODUCT USED FOR UNKNOWN INDICATION
  3. ADVAIR HFA [Suspect]
     Active Substance: FLUTICASONE PROPIONATE\SALMETEROL XINAFOATE
     Indication: PRODUCT USED FOR UNKNOWN INDICATION
     Dosage: UNK

REACTIONS (9)
  - Intentional product use issue [Unknown]
  - Chronic obstructive pulmonary disease [Unknown]
  - Radiotherapy [Unknown]
  - Biopsy [Unknown]
  - Adverse event [Unknown]
  - Breast cancer [Unknown]
  - Surgery [Unknown]
  - Impaired work ability [Unknown]
  - Drug dose omission [Unknown]

NARRATIVE: CASE EVENT DATE: 201408
